FAERS Safety Report 8131925-1 (Version None)
Quarter: 2012Q1

REPORT INFORMATION
  Report Type: 
  Country: None (occurrence: None)
  Receive Date: 20120207
  Receipt Date: 20120123
  Transmission Date: 20120608
  Serious: Yes (Hospitalization, Other)
  Sender: FDA-Public Use
  Company Number: MCA-C-12-006

PATIENT
  Age: 58 Year
  Sex: Male

DRUGS (1)
  1. CEPHALEXIN [Suspect]

REACTIONS (4)
  - NAUSEA [None]
  - VOMITING [None]
  - DIARRHOEA [None]
  - ACUTE GENERALISED EXANTHEMATOUS PUSTULOSIS [None]
